FAERS Safety Report 13131521 (Version 2)
Quarter: 2017Q1

REPORT INFORMATION
  Report Type: Spontaneous
  Country: US (occurrence: US)
  Receive Date: 20170119
  Receipt Date: 20170206
  Transmission Date: 20170428
  Serious: No
  Sender: FDA-Public Use
  Company Number: US-BAYER-2017-009764

PATIENT
  Age: 60 Year
  Sex: Female

DRUGS (3)
  1. CLIMARA PRO [Suspect]
     Active Substance: ESTRADIOL\LEVONORGESTREL
     Indication: HORMONE REPLACEMENT THERAPY
     Dosage: UNK UNK, OW
     Route: 062
     Dates: start: 201611
  2. CLIMARA PRO [Suspect]
     Active Substance: ESTRADIOL\LEVONORGESTREL
     Indication: HOT FLUSH
  3. CLIMARA PRO [Suspect]
     Active Substance: ESTRADIOL\LEVONORGESTREL
     Indication: INSOMNIA

REACTIONS (9)
  - Device material issue [None]
  - Stress [None]
  - Device difficult to use [None]
  - Application site reaction [None]
  - Drug ineffective [None]
  - Mood altered [Not Recovered/Not Resolved]
  - Product label confusion [None]
  - Product adhesion issue [Not Recovered/Not Resolved]
  - Patient dissatisfaction with treatment [Not Recovered/Not Resolved]
